FAERS Safety Report 20068072 (Version 1)
Quarter: 2021Q4

REPORT INFORMATION
  Report Type: Spontaneous
  Country: US (occurrence: None)
  Receive Date: 20211114
  Receipt Date: 20211114
  Transmission Date: 20220303
  Serious: Yes (Hospitalization)
  Sender: FDA-Public Use
  Company Number: None

PATIENT
  Age: 30 Year
  Sex: Female
  Weight: 113.4 kg

DRUGS (1)
  1. CASIRIVIMAB\IMDEVIMAB [Suspect]
     Active Substance: CASIRIVIMAB\IMDEVIMAB
     Indication: COVID-19
     Dosage: FREQUENCY : ONCE;?
     Route: 042
     Dates: start: 20211109, end: 20211109

REACTIONS (7)
  - Dizziness [None]
  - Dyspnoea [None]
  - Infusion related reaction [None]
  - Throat tightness [None]
  - Anxiety [None]
  - Paraesthesia [None]
  - Tremor [None]

NARRATIVE: CASE EVENT DATE: 20211109
